FAERS Safety Report 10156041 (Version 1)
Quarter: 2014Q2

REPORT INFORMATION
  Report Type: Spontaneous
  Country: US (occurrence: US)
  Receive Date: 20140506
  Receipt Date: 20140506
  Transmission Date: 20141212
  Serious: No
  Sender: FDA-Public Use
  Company Number: US-009507513-2012SP008482

PATIENT
  Sex: Male
  Weight: 13.61 kg

DRUGS (2)
  1. CLARITIN ORAL SOLUTION [Suspect]
     Indication: HYPERSENSITIVITY
     Dosage: 5 MG, QD
     Route: 048
     Dates: start: 201201
  2. CLARITIN ORAL SOLUTION [Suspect]
     Dosage: UNK UNK, ONCE
     Route: 048
     Dates: start: 2012

REACTIONS (1)
  - Overdose [Unknown]
